FAERS Safety Report 6847546-4 (Version None)
Quarter: 2010Q3

REPORT INFORMATION
  Report Type: 
  Country: None (occurrence: None)
  Receive Date: 20100716
  Receipt Date: 20100713
  Transmission Date: 20110219
  Serious: Yes (Death)
  Sender: FDA-Public Use
  Company Number: US-ASTRAZENECA-2008AC03040

PATIENT
  Age: 16 Year
  Sex: Female

DRUGS (3)
  1. BUPIVACAINE HCL [Suspect]
     Route: 042
  2. FENTANYL [Suspect]
     Route: 008
  3. PENICILLIN [Suspect]

REACTIONS (6)
  - CIRCULATORY COLLAPSE [None]
  - CONVULSION [None]
  - DYSPNOEA [None]
  - INCORRECT ROUTE OF DRUG ADMINISTRATION [None]
  - MUSCLE TIGHTNESS [None]
  - WRONG DRUG ADMINISTERED [None]
